FAERS Safety Report 6377265-2 (Version None)
Quarter: 2009Q3

REPORT INFORMATION
  Report Type: 
  Country: None (occurrence: None)
  Receive Date: 20090921
  Receipt Date: 20090909
  Transmission Date: 20100115
  Serious: Yes (Other)
  Sender: FDA-Public Use
  Company Number: 1000008876

PATIENT
  Age: 46 Year
  Sex: Female

DRUGS (3)
  1. ESCITALOPRAM [Suspect]
     Dosage: ORAL
     Route: 048
  2. CHAMPIX (TABLETS) [Suspect]
     Dosage: ORAL
     Route: 048
  3. EFFEXOR XR [Concomitant]

REACTIONS (9)
  - AGGRESSION [None]
  - ANXIETY [None]
  - CRYING [None]
  - HOSTILITY [None]
  - MOOD SWINGS [None]
  - MUSCLE TIGHTNESS [None]
  - PANIC REACTION [None]
  - SUICIDAL IDEATION [None]
  - VOMITING [None]
